FAERS Safety Report 15492210 (Version 1)
Quarter: 2018Q4

REPORT INFORMATION
  Report Type: Spontaneous
  Country: US (occurrence: US)
  Receive Date: 20181004
  Receipt Date: 20181004
  Transmission Date: 20190205
  Serious: Yes (Hospitalization)
  Sender: FDA-Public Use
  Company Number: None

PATIENT
  Age: 33 Year
  Weight: 140.4 kg

DRUGS (7)
  1. MERCAPTOPURINE. [Concomitant]
     Active Substance: MERCAPTOPURINE
     Dates: end: 20171119
  2. CYCLOPHOSPHAMIDE( 26271) [Suspect]
     Active Substance: CYCLOPHOSPHAMIDE
     Dates: end: 20171106
  3. CYTARABINE. [Concomitant]
     Active Substance: CYTARABINE
     Dates: end: 20171116
  4. DAUNORUBICIN [Concomitant]
     Active Substance: DAUNORUBICIN
     Dates: end: 20171009
  5. PEG/L-ASPARAGINASE [Concomitant]
     Active Substance: PEGASPARGASE
     Dates: end: 20171120
  6. DEXAMETHASONE. [Concomitant]
     Active Substance: DEXAMETHASONE
     Dates: end: 20171008
  7. VINCRISTINE SULFATE. [Concomitant]
     Active Substance: VINCRISTINE SULFATE
     Dates: end: 20171009

REACTIONS (12)
  - Citrobacter infection [None]
  - White blood cell count decreased [None]
  - Neutrophil count decreased [None]
  - Arthralgia [None]
  - Chills [None]
  - Hypertension [None]
  - Bacterial infection [None]
  - Pain [None]
  - Blood culture positive [None]
  - Haemoglobin decreased [None]
  - Vascular device infection [None]
  - Pyrexia [None]

NARRATIVE: CASE EVENT DATE: 20171127
